FAERS Safety Report 11251002 (Version 1)
Quarter: 2015Q3

REPORT INFORMATION
  Report Type: Spontaneous
  Country: US (occurrence: US)
  Receive Date: 20150708
  Receipt Date: 20150708
  Transmission Date: 20151125
  Serious: No
  Sender: FDA-Public Use
  Company Number: US-ELI_LILLY_AND_COMPANY-US201010006446

PATIENT
  Age: 59 Year
  Sex: Male

DRUGS (2)
  1. SYMBYAX [Suspect]
     Active Substance: FLUOXETINE HYDROCHLORIDE\OLANZAPINE
     Dosage: 6/50MG, UNK
     Route: 065
     Dates: start: 201010, end: 20101025
  2. SYMBYAX [Suspect]
     Active Substance: FLUOXETINE HYDROCHLORIDE\OLANZAPINE
     Indication: PARANOIA
     Dosage: 3/25MG, UNK
     Route: 065

REACTIONS (3)
  - Dyspnoea [Unknown]
  - Asthenia [Unknown]
  - Oral mucosal blistering [Unknown]
